FAERS Safety Report 7589947-5 (Version None)
Quarter: 2011Q3

REPORT INFORMATION
  Report Type: 
  Country: None (occurrence: None)
  Receive Date: 20110705
  Receipt Date: 20090818
  Transmission Date: 20111222
  Serious: Yes (Hospitalization)
  Sender: FDA-Public Use
  Company Number: A0803839A

PATIENT
  Age: 70 Year
  Sex: Female

DRUGS (2)
  1. METFORMIN HCL [Concomitant]
     Dates: end: 20060101
  2. AVANDIA [Suspect]
     Dosage: 8MG PER DAY
     Route: 048
     Dates: start: 20050816, end: 20060116

REACTIONS (3)
  - CARDIAC FAILURE CONGESTIVE [None]
  - CORONARY ARTERY DISEASE [None]
  - MACULAR OEDEMA [None]
